FAERS Safety Report 7825553-2 (Version None)
Quarter: 2011Q4

REPORT INFORMATION
  Report Type: 
  Country: None (occurrence: None)
  Receive Date: 20111019
  Receipt Date: 20111010
  Transmission Date: 20120403
  Serious: Yes (Life-Threatening)
  Sender: FDA-Public Use
  Company Number: FR-TEVA-305381ISR

PATIENT
  Sex: Female

DRUGS (2)
  1. AZILECT [Suspect]
     Indication: PARKINSON'S DISEASE
     Dosage: 1 MILLIGRAM;
     Route: 048
     Dates: start: 20090526
  2. REQUIP [Suspect]
     Indication: PARKINSON'S DISEASE
     Dosage: 8 MILLIGRAM;
     Route: 048
     Dates: start: 20090911

REACTIONS (2)
  - RECTAL CANCER [None]
  - RECTAL HAEMORRHAGE [None]
